FAERS Safety Report 5860230-9 (Version None)
Quarter: 2008Q3

REPORT INFORMATION
  Report Type: 
  Country: None (occurrence: None)
  Receive Date: 20080827
  Receipt Date: 20080818
  Transmission Date: 20090109
  Serious: Yes (Hospitalization)
  Sender: FDA-Public Use
  Company Number: CA-AMGEN-US291386

PATIENT
  Sex: Male

DRUGS (11)
  1. PANITUMUMAB [Suspect]
     Indication: COLORECTAL CANCER
     Route: 042
     Dates: start: 20080506, end: 20080617
  2. CISPLATIN [Concomitant]
     Route: 042
     Dates: start: 20080506, end: 20080617
  3. FLUOROURACIL [Concomitant]
     Route: 042
     Dates: start: 20080506, end: 20080617
  4. LACTULOSE [Concomitant]
     Route: 065
  5. MILK OF MAGNESIA [Concomitant]
     Route: 065
  6. COLACE [Concomitant]
     Route: 065
  7. SENOKOT [Concomitant]
     Route: 065
  8. MAGNESIUM SULFATE [Concomitant]
     Route: 065
  9. TYLENOL W/ CODEINE NO. 3 [Concomitant]
     Route: 065
  10. GRAVOL TAB [Concomitant]
     Route: 065
  11. EMEND [Concomitant]

REACTIONS (6)
  - ANAEMIA [None]
  - FEBRILE NEUTROPENIA [None]
  - HYPOKALAEMIA [None]
  - HYPOMAGNESAEMIA [None]
  - MOTOR DYSFUNCTION [None]
  - SEPSIS [None]
